FAERS Safety Report 21761496 (Version 1)
Quarter: 2022Q4

REPORT INFORMATION
  Report Type: Spontaneous
  Country: US (occurrence: US)
  Receive Date: 20221221
  Receipt Date: 20221221
  Transmission Date: 20230112
  Serious: Yes (Other)
  Sender: FDA-Public Use
  Company Number: US-BRACCO-2022US05479

PATIENT
  Age: 63 Year
  Sex: Female

DRUGS (14)
  1. LUMASON [Suspect]
     Active Substance: SULFUR HEXAFLUORIDE
     Indication: Echocardiogram
     Dosage: 2 ML, SINGLE
     Route: 042
     Dates: start: 20221214, end: 20221214
  2. LUMASON [Suspect]
     Active Substance: SULFUR HEXAFLUORIDE
     Indication: Echocardiogram
     Dosage: 2 ML, SINGLE
     Route: 042
     Dates: start: 20221214, end: 20221214
  3. LUMASON [Suspect]
     Active Substance: SULFUR HEXAFLUORIDE
     Indication: Echocardiogram
     Dosage: 2 ML, SINGLE
     Route: 042
     Dates: start: 20221214, end: 20221214
  4. SYNTHROID [Concomitant]
     Active Substance: LEVOTHYROXINE SODIUM
  5. LISINOPRIL [Concomitant]
     Active Substance: LISINOPRIL
  6. COLESEVELAM [Concomitant]
     Active Substance: COLESEVELAM
  7. LOPRESSOR [Concomitant]
     Active Substance: METOPROLOL TARTRATE
  8. EFFEXOR [Concomitant]
     Active Substance: VENLAFAXINE HYDROCHLORIDE
  9. ESTRADIOL [Concomitant]
     Active Substance: ESTRADIOL
  10. VIT B1 [THIAMINE HYDROCHLORIDE] [Concomitant]
  11. POTASSIUM [Concomitant]
     Active Substance: POTASSIUM
  12. CALCIUM [Concomitant]
     Active Substance: CALCIUM
  13. VIT D [VITAMIN D NOS] [Concomitant]
  14. VITAMIN B12 [Concomitant]
     Active Substance: CYANOCOBALAMIN

REACTIONS (6)
  - Anxiety [Recovered/Resolved]
  - Blood pressure increased [Recovered/Resolved]
  - Heart rate increased [Recovered/Resolved]
  - Dyspnoea [Recovered/Resolved]
  - Flushing [Recovered/Resolved]
  - Head discomfort [Recovered/Resolved]

NARRATIVE: CASE EVENT DATE: 20221214
